FAERS Safety Report 8784894 (Version 6)
Quarter: 2013Q2

REPORT INFORMATION
  Report Type: Report from Study
  Country: FR (occurrence: FR)
  Receive Date: 20120914
  Receipt Date: 20130404
  Transmission Date: 20140414
  Serious: Yes (Hospitalization, Other)
  Sender: FDA-Public Use
  Company Number: FR-BRISTOL-MYERS SQUIBB COMPANY-16862757

PATIENT
  Age: 63 Year
  Sex: Male

DRUGS (23)
  1. CARBOPLATIN [Suspect]
     Indication: NON-SMALL CELL LUNG CANCER
     Dosage: DF= 6 AUC
     Route: 042
     Dates: start: 20120711, end: 20120801
  2. PACLITAXEL [Suspect]
     Indication: NON-SMALL CELL LUNG CANCER
     Dosage: DOSE:6AUC
     Route: 042
     Dates: start: 20120711, end: 20120801
  3. TARGOCID [Suspect]
  4. CORDARONE [Concomitant]
     Dates: start: 20120615, end: 20120814
  5. COVERSYL [Concomitant]
     Dates: start: 201207
  6. LASILIX [Concomitant]
     Dates: start: 2005
  7. HUMALOG [Concomitant]
  8. INEXIUM [Concomitant]
  9. INSPRA [Concomitant]
  10. KETOPROFENE [Concomitant]
  11. LANTUS [Concomitant]
  12. PREVISCAN [Concomitant]
  13. SPASFON [Concomitant]
  14. KAYEXALATE [Concomitant]
  15. ARIXTRA [Concomitant]
  16. CEFTAZIDIME [Concomitant]
  17. DIFFU-K [Concomitant]
  18. FUNGIZONE [Concomitant]
  19. KARDEGIC [Concomitant]
  20. LEXOMIL [Concomitant]
  21. MACROGOL [Concomitant]
  22. PARACETAMOL [Concomitant]
  23. STILNOX [Concomitant]

REACTIONS (2)
  - Sepsis [Recovered/Resolved]
  - Thrombocytopenia [Recovered/Resolved]
